FAERS Safety Report 13108873 (Version 1)
Quarter: 2017Q1

REPORT INFORMATION
  Report Type: Spontaneous
  Country: US (occurrence: US)
  Receive Date: 20170112
  Receipt Date: 20170112
  Transmission Date: 20170428
  Serious: No
  Sender: FDA-Public Use
  Company Number: US-LANTHEUS-LMI-2016-00143

PATIENT
  Age: 42 Year
  Sex: Female

DRUGS (1)
  1. CARDIOLITE [Suspect]
     Active Substance: TECHNETIUM TC-99M SESTAMIBI
     Indication: CARDIAC STRESS TEST
     Route: 065
     Dates: start: 20160317, end: 20160317

REACTIONS (1)
  - Lip swelling [Unknown]

NARRATIVE: CASE EVENT DATE: 20160317
